FAERS Safety Report 5382288-6 (Version None)
Quarter: 2007Q3

REPORT INFORMATION
  Report Type: 
  Country: None (occurrence: None)
  Receive Date: 20070709
  Receipt Date: 20070627
  Transmission Date: 20080115
  Serious: Yes (Other)
  Sender: FDA-Public Use
  Company Number: AU-SANOFI-SYNTHELABO-A01200707064

PATIENT
  Age: 31 Year
  Sex: Female

DRUGS (2)
  1. EFFEXOR [Concomitant]
     Indication: DRUG USE FOR UNKNOWN INDICATION
     Dosage: 150 MG
     Route: 065
  2. ZOLPIDEM TARTRATE [Suspect]
     Indication: DRUG USE FOR UNKNOWN INDICATION
     Route: 048
     Dates: start: 20061121

REACTIONS (5)
  - ABNORMAL SLEEP-RELATED EVENT [None]
  - AMNESIA [None]
  - EATING DISORDER [None]
  - IMPAIRED DRIVING ABILITY [None]
  - SOMNAMBULISM [None]
